FAERS Safety Report 21085375 (Version 2)
Quarter: 2022Q3

REPORT INFORMATION
  Report Type: Spontaneous
  Country: MX (occurrence: MX)
  Receive Date: 20220714
  Receipt Date: 20220719
  Transmission Date: 20221026
  Serious: Yes (Other)
  Sender: FDA-Public Use
  Company Number: MX-BAYER-2022A096188

PATIENT
  Sex: Female

DRUGS (1)
  1. XARELTO [Suspect]
     Active Substance: RIVAROXABAN
     Indication: Atrial fibrillation
     Route: 048

REACTIONS (3)
  - Facial bones fracture [Unknown]
  - Fall [Unknown]
  - Chest pain [Unknown]
